FAERS Safety Report 6639470-7 (Version None)
Quarter: 2010Q1

REPORT INFORMATION
  Report Type: 
  Country: None (occurrence: None)
  Receive Date: 20100318
  Receipt Date: 20100308
  Transmission Date: 20100710
  Serious: Yes (Hospitalization, Other)
  Sender: FDA-Public Use
  Company Number: AU-WYE-G05724610

PATIENT
  Sex: Female

DRUGS (3)
  1. VENLAFAXINE HYDROCHLORIDE [Suspect]
     Indication: DEPRESSION
     Dosage: UNKNOWN
     Dates: start: 20100217
  2. TRIPTORELIN [Suspect]
     Indication: BREAST CANCER
     Dosage: 3.75MG
     Route: 030
     Dates: start: 20090909, end: 20100224
  3. TAMOXIFEN CITRATE [Suspect]
     Indication: BREAST CANCER
     Dosage: 20MG
     Route: 048
     Dates: start: 20090910

REACTIONS (6)
  - CONDITION AGGRAVATED [None]
  - DECREASED APPETITE [None]
  - DEPRESSION [None]
  - INSOMNIA [None]
  - MOOD ALTERED [None]
  - SUICIDAL IDEATION [None]
